FAERS Safety Report 5370479-X (Version None)
Quarter: 2007Q2

REPORT INFORMATION
  Report Type: 
  Country: None (occurrence: None)
  Receive Date: 20070626
  Receipt Date: 20070405
  Transmission Date: 20071010
  Serious: Yes (Other)
  Sender: FDA-Public Use
  Company Number: US-AMGEN-US215045

PATIENT
  Sex: Male
  Weight: 95.8 kg

DRUGS (17)
  1. ARANESP [Suspect]
     Indication: RENAL FAILURE CHRONIC
     Route: 051
     Dates: end: 20070314
  2. NEORAL [Concomitant]
     Route: 048
  3. PROPOXYPHENE NAPSYLATE W/ ACETAMINOPHEN [Concomitant]
     Route: 048
  4. CLOPIDOGREL BISULFATE [Concomitant]
     Route: 048
  5. HYDRALAZINE HCL [Concomitant]
     Route: 048
  6. ALLOPURINOL [Concomitant]
     Route: 048
  7. COZAAR [Concomitant]
     Route: 048
  8. FLOMAX [Concomitant]
     Route: 048
  9. FUROSEMIDE [Concomitant]
     Route: 048
  10. AVANDIA [Concomitant]
     Route: 048
  11. FLUDROCORTISONE ACETATE [Concomitant]
     Route: 048
  12. SIMVASTATIN [Concomitant]
     Route: 048
  13. IRON [Concomitant]
     Route: 048
  14. MAGNESIUM OXIDE [Concomitant]
     Route: 048
  15. ZINC [Concomitant]
     Route: 048
  16. LEVOXYL [Concomitant]
  17. HYDROXYZINE HYDROCHLORIDE [Concomitant]

REACTIONS (1)
  - RASH ERYTHEMATOUS [None]
